FAERS Safety Report 5589258-3 (Version None)
Quarter: 2008Q1

REPORT INFORMATION
  Report Type: 
  Country: None (occurrence: None)
  Receive Date: 20080114
  Receipt Date: 20080104
  Transmission Date: 20080703
  Serious: Yes (Other)
  Sender: FDA-Public Use
  Company Number: PHBS2007JP17946

PATIENT
  Age: 83 Year
  Sex: Female

DRUGS (15)
  1. MIKELAN (NVO) [Suspect]
     Indication: OCULAR HYPERTENSION
     Dosage: 1 GTT, TID
     Dates: start: 20070901, end: 20070901
  2. SODIUM HYALURONATE [Concomitant]
     Indication: DRY EYE
     Dosage: UNK, UNK
     Dates: start: 20060308
  3. GATIFLOXACIN [Concomitant]
     Indication: CONJUNCTIVITIS
     Dosage: UNK, UNK
     Dates: start: 20060824, end: 20070901
  4. CLOSTRIDIUM BUTYRICUM [Concomitant]
     Dosage: 3 DF, UNK
     Route: 048
     Dates: start: 20030114
  5. CANDESARTAN CILEXETIL [Concomitant]
     Indication: HYPERTENSION
     Dosage: 4 MG, UNK
     Route: 048
     Dates: start: 20030107
  6. DIAZEPAM [Concomitant]
     Dosage: 5 MG, UNK
     Route: 048
  7. GLYCERYL TRINITRATE [Concomitant]
     Dosage: 1 DF, UNK
     Route: 061
     Dates: start: 20030705
  8. DILTIAZEM HYDROCHLORIDE [Concomitant]
     Indication: ANGINA PECTORIS
     Dosage: 90 MG, UNK
     Route: 048
     Dates: start: 20031114
  9. ACETYLSALICYLIC ACID SRT [Concomitant]
     Indication: CEREBRAL INFARCTION
     Dosage: 100 MG, UNK
     Route: 048
  10. PITAVASTATIN CALCIUM [Concomitant]
     Route: 048
     Dates: start: 20050207
  11. RALOXIFENE HYDROCHLORIDE [Concomitant]
     Dosage: 60 MG, UNK
     Route: 048
     Dates: start: 20050214
  12. VOGLIBOSE [Concomitant]
     Indication: DIABETES MELLITUS
     Dosage: 0.6 MG, UNK
     Route: 048
     Dates: start: 20050303
  13. CARBAZOCHROME SODIUM SULFONATE [Concomitant]
     Indication: VASCULAR RESISTANCE SYSTEMIC INCREASED
     Dosage: 90 MG, UNK
     Route: 048
     Dates: start: 20060222
  14. OMEPRAZOLE [Concomitant]
     Dosage: 10 MG, UNK
     Route: 048
     Dates: start: 20060705
  15. MAGNESIUM OXIDE [Concomitant]
     Dosage: 990 MG, UNK
     Route: 048
     Dates: start: 20070822

REACTIONS (6)
  - DYSARTHRIA [None]
  - HEART RATE DECREASED [None]
  - HYPOTENSION [None]
  - MALAISE [None]
  - MOBILITY DECREASED [None]
  - OVERDOSE [None]
